FAERS Safety Report 23503388 (Version 1)
Quarter: 2024Q1

REPORT INFORMATION
  Report Type: Spontaneous
  Country: AR (occurrence: AR)
  Receive Date: 20240208
  Receipt Date: 20240208
  Transmission Date: 20240410
  Serious: Yes (Hospitalization, Other)
  Sender: FDA-Public Use
  Company Number: AR-ABBVIE-5616872

PATIENT
  Age: 16 Year
  Sex: Female

DRUGS (2)
  1. LOPINAVIR\RITONAVIR [Suspect]
     Active Substance: LOPINAVIR\RITONAVIR
     Indication: Product used for unknown indication
     Route: 048
  2. RISPERIDONE-GA [Concomitant]
     Indication: Product used for unknown indication
     Route: 065

REACTIONS (1)
  - Gynaecomastia [Unknown]
